FAERS Safety Report 16140529 (Version 3)
Quarter: 2019Q3

REPORT INFORMATION
  Report Type: Report from Study
  Country: DE (occurrence: DE)
  Receive Date: 20190401
  Receipt Date: 20190701
  Transmission Date: 20191004
  Serious: Yes (Hospitalization, Other)
  Sender: FDA-Public Use
  Company Number: DE-ROCHE-2077802

PATIENT
  Age: 46 Year
  Sex: Female

DRUGS (15)
  1. CARBAMAZEPIN [Concomitant]
     Active Substance: CARBAMAZEPINE
     Route: 065
  2. ANGELIQ [Concomitant]
     Active Substance: DROSPIRENONE\ESTRADIOL
  3. OCREVUS [Suspect]
     Active Substance: OCRELIZUMAB
     Indication: PRIMARY PROGRESSIVE MULTIPLE SCLEROSIS
     Dosage: NEXT DOSE ON 16/JAN/2018
     Route: 042
     Dates: start: 20180102
  4. GABAPENTIN. [Concomitant]
     Active Substance: GABAPENTIN
     Dosage: 1-2-3
     Route: 065
  5. MELPERON [Concomitant]
     Active Substance: MELPERONE
     Route: 065
  6. GABAPENTIN. [Concomitant]
     Active Substance: GABAPENTIN
     Dosage: 1-1-2
     Route: 065
  7. SATIVEX [Concomitant]
     Active Substance: NABIXIMOLS
     Dosage: 1-2 DF
     Route: 065
  8. BOTOX [Concomitant]
     Active Substance: ONABOTULINUMTOXINA
     Indication: BLADDER IRRITATION
     Dosage: LAST DOCUMENTED ADMINISTRATION ON 12-FEB-2018
     Route: 065
  9. BACLOFEN. [Concomitant]
     Active Substance: BACLOFEN
     Route: 065
  10. NOVAMINSULFON [Concomitant]
     Active Substance: METAMIZOLE
     Dosage: 3 TO 4 TIMES PER DAY
     Route: 065
  11. BACLOFEN. [Concomitant]
     Active Substance: BACLOFEN
     Route: 065
  12. BACLOFEN. [Concomitant]
     Active Substance: BACLOFEN
     Route: 065
  13. OCREVUS [Suspect]
     Active Substance: OCRELIZUMAB
     Dosage: SECOND MAINTENANCE DOSE ON 16/JAN/2019
     Route: 042
  14. CITALOPRAM [Concomitant]
     Active Substance: CITALOPRAM HYDROBROMIDE
     Route: 065
  15. ALENDRONIC ACID [Concomitant]
     Active Substance: ALENDRONIC ACID
     Route: 065

REACTIONS (19)
  - Myalgia [Not Recovered/Not Resolved]
  - Fall [Unknown]
  - Dizziness [Recovered/Resolved]
  - Drug ineffective [Unknown]
  - Burning sensation [Not Recovered/Not Resolved]
  - Nasopharyngitis [Recovered/Resolved]
  - Peripheral coldness [Not Recovered/Not Resolved]
  - Oral mucosal exfoliation [Recovered/Resolved]
  - Haemarthrosis [Recovered/Resolved]
  - Fatigue [Recovered/Resolved]
  - Fatigue [Recovering/Resolving]
  - Fall [Unknown]
  - Limb injury [Recovered/Resolved]
  - Cystitis noninfective [Recovered/Resolved]
  - Pollakiuria [Recovering/Resolving]
  - Balance disorder [Not Recovered/Not Resolved]
  - Asthenia [Not Recovered/Not Resolved]
  - Osteoarthritis [Not Recovered/Not Resolved]
  - Back pain [Not Recovered/Not Resolved]

NARRATIVE: CASE EVENT DATE: 20180102
